FAERS Safety Report 5105665-7 (Version None)
Quarter: 2006Q3

REPORT INFORMATION
  Report Type: 
  Country: None (occurrence: None)
  Receive Date: 20060915
  Receipt Date: 20050916
  Transmission Date: 20061208
  Serious: Yes (Hospitalization, Other)
  Sender: FDA-Public Use
  Company Number: PHNR2005AU01442

PATIENT
  Age: 5 Year
  Sex: Male

DRUGS (2)
  1. RITALIN [Suspect]
     Indication: ATTENTION DEFICIT/HYPERACTIVITY DISORDER
     Dosage: 10 MG, UNK
     Route: 048
  2. RITALIN [Suspect]
     Dosage: 10 MG, BID
     Dates: start: 20051201

REACTIONS (13)
  - ANGIOGRAM CEREBRAL ABNORMAL [None]
  - CEREBRAL ARTERY STENOSIS [None]
  - CEREBRAL ARTERY THROMBOSIS [None]
  - CEREBRAL INFARCTION [None]
  - CEREBROVASCULAR ACCIDENT [None]
  - CLUMSINESS [None]
  - HEMIPARESIS [None]
  - INFLUENZA [None]
  - INFLUENZA LIKE ILLNESS [None]
  - NUCLEAR MAGNETIC RESONANCE IMAGING BRAIN ABNORMAL [None]
  - PHYSIOTHERAPY [None]
  - REHABILITATION THERAPY [None]
  - SPEECH REHABILITATION [None]
